FAERS Safety Report 14179693 (Version 2)
Quarter: 2017Q4

REPORT INFORMATION
  Report Type: Spontaneous
  Country: SA (occurrence: SA)
  Receive Date: 20171110
  Receipt Date: 20171215
  Transmission Date: 20180321
  Serious: Yes (Death)
  Sender: FDA-Public Use
  Company Number: PHHY2017SA165218

PATIENT
  Age: 55 Year
  Sex: Female
  Weight: 50.3 kg

DRUGS (3)
  1. EVEROLIMUS. [Suspect]
     Active Substance: EVEROLIMUS
     Indication: GASTROENTEROPANCREATIC NEUROENDOCRINE TUMOUR DISEASE
     Dosage: 10 MG, QD
     Route: 065
     Dates: start: 20150201, end: 20150317
  2. TEMOZOLOMIDE. [Suspect]
     Active Substance: TEMOZOLOMIDE
     Indication: PRODUCT USED FOR UNKNOWN INDICATION
     Dosage: UNK (FOR ONLY 2 CYCLES)
     Route: 065
     Dates: start: 20150317
  3. CAPECITABINE. [Suspect]
     Active Substance: CAPECITABINE
     Indication: PRODUCT USED FOR UNKNOWN INDICATION
     Dosage: UNK (FOR ONLY 2 CYCLES)
     Route: 065
     Dates: start: 20150317

REACTIONS (5)
  - Metastases to peritoneum [Fatal]
  - Intestinal obstruction [Fatal]
  - Drug ineffective [Unknown]
  - Gastroenteropancreatic neuroendocrine tumour disease [Fatal]
  - Malignant neoplasm progression [Fatal]

NARRATIVE: CASE EVENT DATE: 20150520
